FAERS Safety Report 21678509 (Version 2)
Quarter: 2023Q1

REPORT INFORMATION
  Report Type: Report from Study
  Country: US (occurrence: US)
  Receive Date: 20221203
  Receipt Date: 20230102
  Transmission Date: 20230418
  Serious: Yes (Hospitalization)
  Sender: FDA-Public Use
  Company Number: US-002147023-NVSC2022US280918

PATIENT
  Sex: Female

DRUGS (2)
  1. TREPROSTINIL [Suspect]
     Active Substance: TREPROSTINIL
     Indication: Pulmonary arterial hypertension
     Dosage: 24.4 NG/KG/MIN, CONT
     Route: 042
     Dates: start: 20210919
  2. TREPROSTINIL [Suspect]
     Active Substance: TREPROSTINIL
     Dosage: 44.1 NG/KG/MIN, CONT
     Route: 042
     Dates: start: 20210922

REACTIONS (3)
  - Cardiac failure congestive [Unknown]
  - Catheter site infection [Recovered/Resolved]
  - Cough [Unknown]
